FAERS Safety Report 6468625-X (Version None)
Quarter: 2009Q4

REPORT INFORMATION
  Report Type: 
  Country: None (occurrence: None)
  Receive Date: 20091203
  Receipt Date: 20091120
  Transmission Date: 20100525
  Serious: No
  Sender: FDA-Public Use
  Company Number: GB-ROCHE-669986

PATIENT
  Age: 33 Year
  Sex: Female

DRUGS (2)
  1. TAMIFLU [Suspect]
     Indication: DRUG USE FOR UNKNOWN INDICATION
     Route: 065
  2. SWINE FLU VACCINE [Suspect]
     Indication: DRUG USE FOR UNKNOWN INDICATION
     Dosage: DRUG NAME REPORTED: H1N1 VACCINE.
     Route: 065

REACTIONS (1)
  - ABDOMINAL PAIN LOWER [None]
